FAERS Safety Report 8379164-3 (Version None)
Quarter: 2012Q1

REPORT INFORMATION
  Report Type: 
  Country: None (occurrence: None)
  Receive Date: 20120323
  Receipt Date: 20110411
  Transmission Date: 20120608
  Serious: Yes (Hospitalization, Other)
  Sender: FDA-Public Use
  Company Number: 163-21880-11032168

PATIENT
  Age: 56 Year
  Sex: Male

DRUGS (27)
  1. GLIPIZIDE [Concomitant]
  2. CLARITIN [Concomitant]
  3. PRILOSEC [Concomitant]
  4. DOCUSATE (DOCUSATE) [Concomitant]
  5. SALINE NASAL SPRAY (SODIUM CHLORIDE) (NASAL DROPS (INCLUDING NASAL SPR [Concomitant]
  6. ALLOPURINOL [Concomitant]
  7. REVLIMID [Suspect]
     Indication: ACUTE MYELOID LEUKAEMIA
     Dosage: 10 MG, DAILY FOR 21 DAYS, PO, 5 MG, 1 IN 2 D, PO, 10 MG, 1 IN 1 D, PO
     Route: 048
     Dates: start: 20110210
  8. REVLIMID [Suspect]
     Indication: MYELODYSPLASTIC SYNDROME
     Dosage: 10 MG, DAILY FOR 21 DAYS, PO, 5 MG, 1 IN 2 D, PO, 10 MG, 1 IN 1 D, PO
     Route: 048
     Dates: start: 20110210
  9. REVLIMID [Suspect]
     Indication: ACUTE MYELOID LEUKAEMIA
     Dosage: 10 MG, DAILY FOR 21 DAYS, PO, 5 MG, 1 IN 2 D, PO, 10 MG, 1 IN 1 D, PO
     Route: 048
     Dates: start: 20110101
  10. REVLIMID [Suspect]
     Indication: MYELODYSPLASTIC SYNDROME
     Dosage: 10 MG, DAILY FOR 21 DAYS, PO, 5 MG, 1 IN 2 D, PO, 10 MG, 1 IN 1 D, PO
     Route: 048
     Dates: start: 20110101
  11. REVLIMID [Suspect]
     Indication: ACUTE MYELOID LEUKAEMIA
     Dosage: 10 MG, DAILY FOR 21 DAYS, PO, 5 MG, 1 IN 2 D, PO, 10 MG, 1 IN 1 D, PO
     Route: 048
     Dates: start: 20110315
  12. REVLIMID [Suspect]
     Indication: MYELODYSPLASTIC SYNDROME
     Dosage: 10 MG, DAILY FOR 21 DAYS, PO, 5 MG, 1 IN 2 D, PO, 10 MG, 1 IN 1 D, PO
     Route: 048
     Dates: start: 20110315
  13. CALCIUM + VITAMIN D (OS-CAL) [Concomitant]
  14. MS CONTIN [Concomitant]
  15. MS CONTIN [Concomitant]
  16. BENADRYL [Concomitant]
  17. NEXIUM [Concomitant]
  18. MIRALAX [Concomitant]
  19. DECITABINE (DECITABINE) [Concomitant]
  20. HYDRALAZINE HCL [Concomitant]
  21. REMERON [Concomitant]
  22. PREDNISONE TAB [Concomitant]
  23. SODIUM BICARB (SODIUM BICARBONATE) [Concomitant]
  24. METOPROLOL TARTRATE [Concomitant]
  25. NIFEDIPINE [Concomitant]
  26. COMBIVENT MDI (COMBIVENT) [Concomitant]
  27. COMPAZINE [Concomitant]

REACTIONS (1)
  - PLATELET COUNT DECREASED [None]
